FAERS Safety Report 4532424-6 (Version None)
Quarter: 2004Q4

REPORT INFORMATION
  Report Type: 
  Country: None (occurrence: None)
  Receive Date: 20041220
  Receipt Date: 20041215
  Transmission Date: 20050328
  Serious: Yes (Death, Life-Threatening, Hospitalization, Disabling)
  Sender: FDA-Public Use
  Company Number: US-MERCK-0412USA01919

PATIENT
  Age: 73 Year
  Sex: Female
  Weight: 74 kg

DRUGS (7)
  1. VIOXX [Suspect]
     Indication: NECK PAIN
     Route: 048
     Dates: start: 20020101
  2. VIOXX [Suspect]
     Route: 048
  3. VIOXX [Suspect]
     Indication: BACK PAIN
     Route: 048
     Dates: start: 20020101
  4. VIOXX [Suspect]
     Route: 048
  5. PREMARIN [Concomitant]
     Route: 065
  6. MAXZIDE [Concomitant]
     Route: 065
  7. PRILOSEC [Concomitant]
     Route: 065

REACTIONS (3)
  - ACUTE MYOCARDIAL INFARCTION [None]
  - ANGINA PECTORIS [None]
  - CARDIOGENIC SHOCK [None]
